FAERS Safety Report 13379240 (Version 1)
Quarter: 2017Q1

REPORT INFORMATION
  Report Type: Spontaneous
  Country: US (occurrence: US)
  Receive Date: 20170328
  Receipt Date: 20170328
  Transmission Date: 20170429
  Serious: No
  Sender: FDA-Public Use
  Company Number: US-ROCHE-GNE319243

PATIENT
  Age: 58 Year
  Sex: Female
  Weight: 93.52 kg

DRUGS (1)
  1. XOLAIR [Suspect]
     Active Substance: OMALIZUMAB
     Indication: PRODUCT USED FOR UNKNOWN INDICATION
     Dosage: 150 MG, Q2W
     Route: 058
     Dates: start: 20110413

REACTIONS (6)
  - Diarrhoea [None]
  - Pain [None]
  - Malaise [None]
  - Vomiting [Unknown]
  - Fatigue [None]
  - Nausea [None]

NARRATIVE: CASE EVENT DATE: 20110413
